FAERS Safety Report 8171805-9 (Version None)
Quarter: 2012Q1

REPORT INFORMATION
  Report Type: 
  Country: None (occurrence: None)
  Receive Date: 20120228
  Receipt Date: 20120223
  Transmission Date: 20120608
  Serious: Yes (Hospitalization)
  Sender: FDA-Public Use
  Company Number: DE-GLAXOSMITHKLINE-B0781630A

PATIENT
  Sex: Female
  Weight: 68 kg

DRUGS (3)
  1. LAPATINIB [Suspect]
     Indication: BREAST CANCER
     Dosage: 1250MG PER DAY
     Route: 048
     Dates: start: 20120126
  2. PACLITAXEL [Suspect]
     Indication: BREAST CANCER
     Dosage: 326MG EVERY 3 WEEKS
     Route: 042
     Dates: start: 20120126
  3. DOXORUBICIN HCL [Suspect]
     Indication: BREAST CANCER
     Dosage: 112MG EVERY 3 WEEKS
     Route: 042
     Dates: start: 20120126

REACTIONS (1)
  - DEVICE RELATED INFECTION [None]
